FAERS Safety Report 5672818-9 (Version None)
Quarter: 2008Q1

REPORT INFORMATION
  Report Type: 
  Country: None (occurrence: None)
  Receive Date: 20080319
  Receipt Date: 20070919
  Transmission Date: 20080703
  Serious: No
  Sender: FDA-Public Use
  Company Number: US-KINGPHARMUSA00001-K200701218

PATIENT

DRUGS (10)
  1. ALTACE [Suspect]
     Indication: MYOCARDIAL INFARCTION
     Dosage: 2.5 MG, QD
     Route: 048
     Dates: start: 20070917
  2. LIPITOR [Concomitant]
  3. FOLIC ACID [Concomitant]
  4. ZYRTEC [Concomitant]
  5. ASPIRIN [Concomitant]
  6. PLAVIX [Concomitant]
  7. METOPROLOL TARTRATE [Concomitant]
  8. PREVACID [Concomitant]
  9. ZETIA [Concomitant]
  10. COQ10 [Concomitant]

REACTIONS (1)
  - MUSCLE SPASMS [None]
